FAERS Safety Report 17209225 (Version 1)
Quarter: 2019Q4

REPORT INFORMATION
  Report Type: Spontaneous
  Country: BG (occurrence: BG)
  Receive Date: 20191227
  Receipt Date: 20191227
  Transmission Date: 20200122
  Serious: Yes (Other)
  Sender: FDA-Public Use
  Company Number: BG-MYLANLABS-2019M1128083

PATIENT
  Age: 71 Year
  Sex: Male

DRUGS (11)
  1. HEPARIN [Concomitant]
     Active Substance: HEPARIN SODIUM
     Dosage: UNK
  2. TORASEMIDE [Concomitant]
     Active Substance: TORSEMIDE
     Dosage: 10 MG, QD
  3. PANTOPRAZOLE [Concomitant]
     Active Substance: PANTOPRAZOLE
     Dosage: 40 MG, QD
  4. FENTANYL. [Concomitant]
     Active Substance: FENTANYL
     Dosage: UNK
  5. ROSUVASTATIN. [Suspect]
     Active Substance: ROSUVASTATIN
     Indication: PRODUCT USED FOR UNKNOWN INDICATION
     Dosage: 10 MILLIGRAM, QD
     Route: 048
  6. AMLODIPINE [Concomitant]
     Active Substance: AMLODIPINE BESYLATE
     Dosage: UNK
  7. ASPIRIN                            /00002701/ [Concomitant]
     Active Substance: ASPIRIN
     Dosage: UNK
  8. VALSATAN PLUS [Concomitant]
     Indication: PRODUCT USED FOR UNKNOWN INDICATION
     Dosage: UNK
     Route: 065
  9. BRILIQUE [Suspect]
     Active Substance: TICAGRELOR
     Indication: ACUTE MYOCARDIAL INFARCTION
     Dosage: 90 MG, Q12H
     Route: 048
  10. ISOKET [Concomitant]
     Active Substance: ISOSORBIDE DINITRATE
     Dosage: SPRAY 2.5 MG SUBLIGUAL
     Route: 060
  11. BISOPROLOL [Concomitant]
     Active Substance: BISOPROLOL
     Dosage: UNK

REACTIONS (1)
  - Angina pectoris [Unknown]
